FAERS Safety Report 17898758 (Version 2)
Quarter: 2020Q2

REPORT INFORMATION
  Report Type: Report from Study
  Country: US (occurrence: US)
  Receive Date: 20200615
  Receipt Date: 20200624
  Transmission Date: 20200714
  Serious: Yes (Hospitalization, Other)
  Sender: FDA-Public Use
  Company Number: US-ACTELION-A-NJ2020-204965

PATIENT
  Age: 79 Year
  Sex: Female
  Weight: 93.88 kg

DRUGS (4)
  1. ADEMPAS [Concomitant]
     Active Substance: RIOCIGUAT
  2. OPSUMIT [Suspect]
     Active Substance: MACITENTAN
     Indication: PULMONARY ARTERIAL HYPERTENSION
     Dosage: 10 MG, QD
     Route: 048
     Dates: start: 20200419, end: 20200506
  3. NEXIUM 24HR [Concomitant]
     Active Substance: ESOMEPRAZOLE MAGNESIUM
  4. AMLODIPINE [Concomitant]
     Active Substance: AMLODIPINE BESYLATE

REACTIONS (15)
  - Hypoaesthesia [Unknown]
  - Renal disorder [Unknown]
  - Drug hypersensitivity [Unknown]
  - Peripheral swelling [Unknown]
  - Malaise [Unknown]
  - Pyrexia [Unknown]
  - Condition aggravated [Not Recovered/Not Resolved]
  - Pruritus [Unknown]
  - Abdominal discomfort [Unknown]
  - Pain [Unknown]
  - Heart rate increased [Unknown]
  - Asthenia [Unknown]
  - Dyspnoea [Unknown]
  - Pain in extremity [Unknown]
  - Diarrhoea [Unknown]

NARRATIVE: CASE EVENT DATE: 20200419
